FAERS Safety Report 4953201-8 (Version None)
Quarter: 2006Q1

REPORT INFORMATION
  Report Type: 
  Country: None (occurrence: None)
  Receive Date: 20060320
  Receipt Date: 20060310
  Transmission Date: 20060701
  Serious: Yes (Hospitalization)
  Sender: FDA-Public Use
  Company Number: 200611422BWH

PATIENT
  Age: 79 Year

DRUGS (6)
  1. NEXAVAR [Suspect]
     Indication: RENAL CELL CARCINOMA STAGE UNSPECIFIED
     Dosage: ORAL
     Route: 048
     Dates: start: 20060101
  2. NORVASC [Concomitant]
  3. DURAGESIC-100 [Concomitant]
  4. LISINOPRIL W/HYDROCHLOROTHIAZIDE [Concomitant]
  5. ZETIA [Concomitant]
  6. ATIVAN [Concomitant]

REACTIONS (2)
  - GASTROINTESTINAL DISORDER [None]
  - PNEUMATOSIS [None]
